FAERS Safety Report 23992304 (Version 1)
Quarter: 2024Q2

REPORT INFORMATION
  Report Type: Spontaneous
  Country: CA (occurrence: CA)
  Receive Date: 20240620
  Receipt Date: 20240620
  Transmission Date: 20240717
  Serious: Yes (Other)
  Sender: FDA-Public Use
  Company Number: CA-HALEON-2181728

PATIENT

DRUGS (7)
  1. FLONASE ALLERGY RELIEF [Suspect]
     Active Substance: FLUTICASONE PROPIONATE
     Indication: Rhinorrhoea
  2. CLOPIDOGREL [Suspect]
     Active Substance: CLOPIDOGREL BISULFATE
     Indication: Anticoagulant therapy
  3. APIXABAN [Suspect]
     Active Substance: APIXABAN
     Indication: Anticoagulant therapy
  4. ASPIRIN [Suspect]
     Active Substance: ASPIRIN
     Indication: Anticoagulant therapy
  5. BISOPROLOL [Suspect]
     Active Substance: BISOPROLOL\BISOPROLOL FUMARATE
     Indication: Blood pressure management
  6. CANDESARTAN [Suspect]
     Active Substance: CANDESARTAN
     Indication: Blood pressure management
  7. SPIRONOLACTONE [Suspect]
     Active Substance: SPIRONOLACTONE
     Indication: Blood pressure management

REACTIONS (4)
  - Blindness transient [Recovered/Resolved]
  - Epistaxis [Recovered/Resolved]
  - Off label use [Unknown]
  - Drug effective for unapproved indication [Unknown]
